FAERS Safety Report 4806039-6 (Version None)
Quarter: 2005Q4

REPORT INFORMATION
  Report Type: 
  Country: None (occurrence: None)
  Receive Date: 20051019
  Receipt Date: 20041119
  Transmission Date: 20060501
  Serious: Yes (Hospitalization)
  Sender: FDA-Public Use
  Company Number: HQ2871719JUN2002

PATIENT
  Age: 48 Year
  Sex: Female
  Weight: 53.9 kg

DRUGS (14)
  1. MYLOTARG [Suspect]
     Indication: ACUTE MYELOID LEUKAEMIA
     Dosage: 4 MG/M^2 1X PER 1 DAY, INTRAVENOUS
     Route: 042
     Dates: start: 20020606, end: 20020606
  2. NEORAL [Concomitant]
  3. AMOXICILLIN [Concomitant]
  4. SPORANOX [Concomitant]
  5. BACTRIM [Concomitant]
  6. PREDNISONE [Concomitant]
  7. ULTRAM [Concomitant]
  8. PEPCID [Concomitant]
  9. ALLOPURINOL [Concomitant]
  10. ZOFRAN [Concomitant]
  11. IBUPROFEN [Concomitant]
  12. CLARITIN [Concomitant]
  13. ACYCLOVIR [Concomitant]
  14. PREMARIN [Concomitant]

REACTIONS (5)
  - ANAEMIA [None]
  - FATIGUE [None]
  - HEADACHE [None]
  - NEUTROPENIA [None]
  - PLATELET COUNT DECREASED [None]
